FAERS Safety Report 5815927-3 (Version None)
Quarter: 2008Q3

REPORT INFORMATION
  Report Type: 
  Country: None (occurrence: None)
  Receive Date: 20080721
  Receipt Date: 20080710
  Transmission Date: 20090109
  Serious: Yes (Other)
  Sender: FDA-Public Use
  Company Number: DE-ROCHE-572539

PATIENT
  Sex: Male
  Weight: 77 kg

DRUGS (1)
  1. ROFERON-A [Suspect]
     Indication: CHRONIC MYELOID LEUKAEMIA
     Route: 058
     Dates: start: 19900501

REACTIONS (1)
  - CORONARY ARTERY DISEASE [None]
